FAERS Safety Report 5405981-5 (Version None)
Quarter: 2007Q3

REPORT INFORMATION
  Report Type: 
  Country: None (occurrence: None)
  Receive Date: 20070802
  Receipt Date: 20070718
  Transmission Date: 20080115
  Serious: Yes (Hospitalization, Disabling)
  Sender: FDA-Public Use
  Company Number: 2007S1005935

PATIENT
  Age: 42 Year
  Sex: Male
  Weight: 83.9154 kg

DRUGS (6)
  1. PHENYTOIN SODIUM [Suspect]
     Indication: EPILEPSY
     Dosage: 200 MG; TWICE A DAY; ORAL
     Route: 048
     Dates: end: 20070301
  2. ALEVE [Concomitant]
  3. GLUCOSAMINE W/CHONDROITIN SULF. [Concomitant]
  4. MANGAN./VIT C [Concomitant]
  5. PHENOBARB [Concomitant]
  6. INDOCIN [Concomitant]

REACTIONS (8)
  - ANTICONVULSANT DRUG LEVEL BELOW THERAPEUTIC [None]
  - GRAND MAL CONVULSION [None]
  - MOBILITY DECREASED [None]
  - ROAD TRAFFIC ACCIDENT [None]
  - SENSORY LOSS [None]
  - SPINAL CORD INJURY [None]
  - TENDONITIS [None]
  - TREATMENT NONCOMPLIANCE [None]
